FAERS Safety Report 9302067 (Version 1)
Quarter: 2013Q2

REPORT INFORMATION
  Report Type: Spontaneous
  Country: US (occurrence: US)
  Receive Date: 20130521
  Receipt Date: 20130521
  Transmission Date: 20140414
  Serious: Yes (Death, Other)
  Sender: FDA-Public Use
  Company Number: US-BAXTER-2013BAX018882

PATIENT
  Sex: Male

DRUGS (6)
  1. NEXTERONE_AMIODARONE, HYDROCHLORIDE 1.50 MG/ML_SOLUTION FOR INFUSION_B [Suspect]
     Indication: MATERNAL EXPOSURE DURING PREGNANCY
     Route: 064
  2. BREVIBLOC DOUBLE STRENGTH PREMIXED INJECTION (ESMOLOL HYDROCHLORIDE) [Suspect]
     Indication: MATERNAL EXPOSURE DURING PREGNANCY
     Route: 064
  3. ISOPROTERENOL [Suspect]
     Indication: MATERNAL EXPOSURE DURING PREGNANCY
     Route: 064
  4. MAGNESIUM [Suspect]
     Indication: MATERNAL EXPOSURE DURING PREGNANCY
     Route: 064
  5. CILOSTAZOL [Suspect]
     Indication: MATERNAL EXPOSURE DURING PREGNANCY
     Route: 064
  6. QUINIDINE GLUCONATE CR [Suspect]
     Indication: MATERNAL EXPOSURE DURING PREGNANCY
     Route: 064

REACTIONS (8)
  - Sudden cardiac death [Fatal]
  - Apnoea neonatal [Recovered/Resolved]
  - Contusion [Unknown]
  - Ventricular extrasystoles [Unknown]
  - Premature baby [Recovered/Resolved]
  - Floppy infant [Recovered/Resolved]
  - Caesarean section [None]
  - Maternal drugs affecting foetus [None]
